FAERS Safety Report 6027414-0 (Version None)
Quarter: 2009Q1

REPORT INFORMATION
  Report Type: 
  Country: None (occurrence: None)
  Receive Date: 20090105
  Receipt Date: 20081225
  Transmission Date: 20090719
  Serious: Yes (Other)
  Sender: FDA-Public Use
  Company Number: JP-JNJFOC-20081206627

PATIENT

DRUGS (1)
  1. ORTHOCLONE [Suspect]
     Indication: KIDNEY TRANSPLANT REJECTION
     Route: 042

REACTIONS (1)
  - ATRIAL FIBRILLATION [None]
